FAERS Safety Report 6954958-7 (Version None)
Quarter: 2010Q3

REPORT INFORMATION
  Report Type: 
  Country: None (occurrence: None)
  Receive Date: 20100830
  Receipt Date: 20100818
  Transmission Date: 20110219
  Serious: Yes (Death, Other)
  Sender: FDA-Public Use
  Company Number: JP-CELGENEUS-087-20785-10082407

PATIENT
  Age: 69 Year
  Sex: Male

DRUGS (3)
  1. THALOMID [Suspect]
     Indication: MULTIPLE MYELOMA
     Route: 048
  2. MELPHALAN [Suspect]
     Indication: MULTIPLE MYELOMA
     Route: 065
  3. PREDNISOLONE [Suspect]
     Indication: MULTIPLE MYELOMA
     Route: 065

REACTIONS (4)
  - CARDIAC FAILURE [None]
  - MULTI-ORGAN FAILURE [None]
  - SEPTIC SHOCK [None]
  - WEIGHT DECREASED [None]
